FAERS Safety Report 5630427-1 (Version None)
Quarter: 2008Q1

REPORT INFORMATION
  Report Type: 
  Country: None (occurrence: None)
  Receive Date: 20080219
  Receipt Date: 20080215
  Transmission Date: 20080703
  Serious: Yes (Hospitalization)
  Sender: FDA-Public Use
  Company Number: JP-BRISTOL-MYERS SQUIBB COMPANY-14078836

PATIENT
  Age: 50 Year
  Sex: Female

DRUGS (4)
  1. BLEO [Suspect]
     Indication: HODGKIN'S DISEASE
     Dosage: ROUTE OF ADMINISTRATION IS GIVEN AS DR
     Dates: start: 20080128
  2. EXAL [Suspect]
     Indication: HODGKIN'S DISEASE
     Dosage: ROUTE OF ADMINISTRATION IS GIVEN AS DR
     Dates: start: 20080128
  3. ADRIAMYCIN PFS [Suspect]
     Indication: HODGKIN'S DISEASE
     Dosage: ROUTE OF ADMINISTRATION IS TAKEN AS DR
     Dates: start: 20080128
  4. DACARBAZINE [Suspect]
     Indication: HODGKIN'S DISEASE
     Dosage: ROUTE OF ADMINISTRATION IS TAKEN AS DR
     Dates: start: 20080128

REACTIONS (1)
  - PLATELET COUNT DECREASED [None]
